FAERS Safety Report 11716164 (Version 2)
Quarter: 2015Q4

REPORT INFORMATION
  Report Type: Spontaneous
  Country: US (occurrence: US)
  Receive Date: 20151104
  Receipt Date: 20151110
  Transmission Date: 20160304
  Serious: No
  Sender: FDA-Public Use
  Company Number: US-ELI_LILLY_AND_COMPANY-US201105002943

PATIENT
  Age: 75 Year
  Sex: Female

DRUGS (10)
  1. FORTEO [Suspect]
     Active Substance: TERIPARATIDE
     Dosage: 20 UG, QD
     Route: 065
  2. FORTEO [Suspect]
     Active Substance: TERIPARATIDE
     Dosage: 20 UG, QD
     Route: 065
  3. FORTEO [Suspect]
     Active Substance: TERIPARATIDE
     Dosage: 20 UG, QD
     Route: 065
  4. FORTEO [Suspect]
     Active Substance: TERIPARATIDE
     Dosage: 20 UG, QD
     Route: 065
  5. FORTEO [Suspect]
     Active Substance: TERIPARATIDE
     Dosage: 20 UG, QD
     Route: 065
  6. OXYGEN. [Concomitant]
     Active Substance: OXYGEN
     Dosage: UNK
     Dates: start: 2009
  7. FORTEO [Suspect]
     Active Substance: TERIPARATIDE
     Dosage: 20 UG, QD
     Route: 065
  8. FORTEO [Suspect]
     Active Substance: TERIPARATIDE
     Dosage: 20 UG, QD
     Route: 065
  9. FORTEO [Suspect]
     Active Substance: TERIPARATIDE
     Indication: OSTEOPOROSIS
     Dosage: 20 UG, QD
     Route: 065
     Dates: start: 20110405
  10. FORTEO [Suspect]
     Active Substance: TERIPARATIDE
     Dosage: 20 UG, QD
     Route: 065

REACTIONS (25)
  - Arthritis [Unknown]
  - Cough [Not Recovered/Not Resolved]
  - Bronchitis [Not Recovered/Not Resolved]
  - Cyst [Recovered/Resolved]
  - Mass [Not Recovered/Not Resolved]
  - Back pain [Unknown]
  - Foot fracture [Unknown]
  - Poor quality sleep [Unknown]
  - Pain in extremity [Unknown]
  - Dizziness postural [Unknown]
  - Peripheral swelling [Unknown]
  - Drug dose omission [Unknown]
  - Bronchitis [Not Recovered/Not Resolved]
  - Peripheral swelling [Unknown]
  - Mobility decreased [Unknown]
  - Decreased activity [Unknown]
  - Pain in extremity [Unknown]
  - Nasopharyngitis [Not Recovered/Not Resolved]
  - Pyrexia [Not Recovered/Not Resolved]
  - Drug dose omission [Unknown]
  - Lung disorder [Unknown]
  - Burning sensation [Unknown]
  - Injection site coldness [Unknown]
  - Malaise [Unknown]
  - Injection site pain [Unknown]

NARRATIVE: CASE EVENT DATE: 2011
